FAERS Safety Report 16017267 (Version 1)
Quarter: 2019Q1

REPORT INFORMATION
  Report Type: Spontaneous
  Country: US (occurrence: US)
  Receive Date: 20190228
  Receipt Date: 20190228
  Transmission Date: 20190418
  Serious: Yes (Death)
  Sender: FDA-Public Use
  Company Number: US-TEVA-2019-US-1017587

PATIENT

DRUGS (5)
  1. OXYCODONE [Suspect]
     Active Substance: OXYCODONE
     Route: 065
  2. KRATOM [Suspect]
     Active Substance: HERBALS\MITRAGYNINE
     Route: 065
  3. DIPHENHYDRAMINE. [Suspect]
     Active Substance: DIPHENHYDRAMINE
     Route: 065
  4. ETIZOLAM [Suspect]
     Active Substance: ETIZOLAM
     Route: 065
  5. BUTYRYLFENTANYL [Suspect]
     Active Substance: BUTYRFENTANYL
     Route: 065

REACTIONS (1)
  - Drug screen positive [Fatal]
